FAERS Safety Report 6332729-2 (Version None)
Quarter: 2009Q3

REPORT INFORMATION
  Report Type: 
  Country: None (occurrence: None)
  Receive Date: 20090828
  Receipt Date: 20090826
  Transmission Date: 20100115
  Serious: Yes (Hospitalization)
  Sender: FDA-Public Use
  Company Number: IT-TEVA-207090ISR

PATIENT
  Sex: Male

DRUGS (1)
  1. AMOXICILLIN [Suspect]

REACTIONS (2)
  - DELIRIUM [None]
  - RASH GENERALISED [None]
